FAERS Safety Report 21766228 (Version 2)
Quarter: 2023Q1

REPORT INFORMATION
  Report Type: Spontaneous
  Country: SE (occurrence: SE)
  Receive Date: 20221222
  Receipt Date: 20230103
  Transmission Date: 20230418
  Serious: Yes (Disabling)
  Sender: FDA-Public Use
  Company Number: SE-ARBOR PHARMACEUTICALS, LLC-SE-2022ARB003070

PATIENT
  Age: 11 Year
  Sex: Female
  Weight: 47 kg

DRUGS (6)
  1. TRIPTODUR [Suspect]
     Active Substance: TRIPTORELIN
     Indication: Precocious puberty
     Dosage: 11.25 MG
     Route: 030
     Dates: start: 20200409, end: 20210216
  2. TRIPTODUR [Suspect]
     Active Substance: TRIPTORELIN
     Dosage: 11.25 MG
     Route: 030
     Dates: start: 20220222, end: 20220517
  3. TRIPTODUR [Suspect]
     Active Substance: TRIPTORELIN
  4. TRIPTODUR [Suspect]
     Active Substance: TRIPTORELIN
  5. BUSERELIN ACETATE [Suspect]
     Active Substance: BUSERELIN ACETATE
     Indication: Precocious puberty
     Dosage: UNK
     Route: 058
     Dates: start: 20210316, end: 20211125
  6. TRIPTORELIN ACETATE [Suspect]
     Active Substance: TRIPTORELIN ACETATE
     Indication: Precocious puberty
     Dosage: 3.75 MG
     Route: 030
     Dates: start: 20220203, end: 20220316

REACTIONS (1)
  - Epiphysiolysis [Not Recovered/Not Resolved]

NARRATIVE: CASE EVENT DATE: 20220611
